FAERS Safety Report 10310935 (Version 5)
Quarter: 2014Q3

REPORT INFORMATION
  Report Type: Report from Study
  Country: FR (occurrence: FR)
  Receive Date: 20140717
  Receipt Date: 20140917
  Transmission Date: 20150326
  Serious: Yes (Hospitalization)
  Sender: FDA-Public Use
  Company Number: FR-CELGENEUS-056-50794-14062074

PATIENT
  Age: 77 Year
  Sex: Male
  Weight: 60 kg

DRUGS (6)
  1. VIDAZA [Suspect]
     Active Substance: AZACITIDINE
     Indication: MYELODYSPLASTIC SYNDROME
     Dosage: 128 MILLIGRAM
     Route: 041
     Dates: start: 20140528, end: 20140603
  2. VIDAZA [Suspect]
     Active Substance: AZACITIDINE
     Dosage: 125 MILLIGRAM
     Route: 041
     Dates: start: 20140630, end: 20140706
  3. DEPAKINE [Suspect]
     Active Substance: VALPROATE SODIUM
     Indication: MYELODYSPLASTIC SYNDROME
     Dosage: 1 GRAM
     Route: 048
     Dates: start: 20140528, end: 20140603
  4. UROREC [Concomitant]
     Active Substance: SILODOSIN
     Indication: PROSTATIC ADENOMA
     Dosage: 8 MILLIGRAM
     Route: 048
  5. DEPAKINE [Suspect]
     Active Substance: VALPROATE SODIUM
     Dosage: 1 GRAM
     Route: 048
     Dates: start: 20140630, end: 20140707
  6. AVODART [Concomitant]
     Active Substance: DUTASTERIDE
     Indication: PROSTATIC DISORDER
     Dosage: .5 MILLIGRAM
     Route: 048
     Dates: start: 20140609

REACTIONS (4)
  - Urinary retention [Recovered/Resolved]
  - Escherichia urinary tract infection [Recovered/Resolved]
  - Pyrexia [Recovered/Resolved]
  - Urinary retention [Recovered/Resolved with Sequelae]

NARRATIVE: CASE EVENT DATE: 20140530
